FAERS Safety Report 7206815-9 (Version None)
Quarter: 2010Q4

REPORT INFORMATION
  Report Type: 
  Country: None (occurrence: None)
  Receive Date: 20101217
  Receipt Date: 20101207
  Transmission Date: 20110411
  Serious: Yes (Other)
  Sender: FDA-Public Use
  Company Number: 2010SP063806

PATIENT
  Sex: Female

DRUGS (4)
  1. DULERA TABLET [Suspect]
     Indication: ASTHMA
     Dosage: INH
     Route: 055
     Dates: start: 20101101, end: 20101205
  2. YAZ [Concomitant]
  3. ZONAGRIN [Concomitant]
  4. PRILOSEC OTC [Concomitant]

REACTIONS (1)
  - PNEUMONIA [None]
